FAERS Safety Report 4981564-6 (Version None)
Quarter: 2006Q2

REPORT INFORMATION
  Report Type: 
  Country: None (occurrence: None)
  Receive Date: 20060425
  Receipt Date: 20060417
  Transmission Date: 20061013
  Serious: Yes (Other)
  Sender: FDA-Public Use
  Company Number: PHEH2006US05068

PATIENT
  Age: 64 Year
  Sex: Male

DRUGS (3)
  1. LAMISIL [Suspect]
     Indication: NAIL TINEA
     Dosage: 250 MG, QD
     Route: 048
  2. TRELSTAR - SLOW RELEASE [Suspect]
     Indication: PROSTATE CANCER
     Dosage: UNK, Q3MO
  3. CASODEX [Suspect]
     Indication: PROSTATE CANCER
     Dosage: UNK, QD
     Route: 048

REACTIONS (3)
  - DRUG INTERACTION [None]
  - HYPERTENSION [None]
  - PROSTATIC SPECIFIC ANTIGEN INCREASED [None]
